FAERS Safety Report 9860046 (Version 2)
Quarter: 2014Q1

REPORT INFORMATION
  Report Type: Spontaneous
  Country: CH (occurrence: CH)
  Receive Date: 20140131
  Receipt Date: 20140226
  Transmission Date: 20141002
  Serious: Yes (Death, Hospitalization)
  Sender: FDA-Public Use
  Company Number: CH-ASTRAZENECA-2014SE06830

PATIENT
  Age: 20454 Day
  Sex: Male

DRUGS (4)
  1. BRILIQUE [Suspect]
     Indication: PERCUTANEOUS CORONARY INTERVENTION
     Route: 048
     Dates: start: 20130514
  2. BRILIQUE [Suspect]
     Indication: CORONARY ANGIOPLASTY
     Route: 048
     Dates: start: 20130514
  3. ASPIRINE [Concomitant]
     Route: 065
     Dates: start: 20130514
  4. LIQUEMIN [Concomitant]
     Dosage: 5000 UI, UNKNOWN FREQUENCY
     Route: 042
     Dates: start: 20130514

REACTIONS (2)
  - Cardiac arrest [Fatal]
  - Thrombosis in device [Unknown]
